FAERS Safety Report 4801622-6 (Version None)
Quarter: 2005Q4

REPORT INFORMATION
  Report Type: 
  Country: None (occurrence: None)
  Receive Date: 20051014
  Receipt Date: 20051014
  Transmission Date: 20060501
  Serious: Yes (Life-Threatening, Hospitalization)
  Sender: FDA-Public Use
  Company Number: None

PATIENT
  Age: 81 Year
  Sex: Female
  Weight: 70.7611 kg

DRUGS (5)
  1. MOBIC [Suspect]
     Indication: ARTHRITIS
     Dosage: 7.5 MG/DAY
     Dates: start: 20050726, end: 20050826
  2. ASPIRIN [Suspect]
     Dosage: 1 TABLET/DAY
  3. TOPROL-XL [Concomitant]
  4. NORVASC [Concomitant]
  5. HYDROCHLOROTHIAZIDE [Concomitant]

REACTIONS (2)
  - ASTHENIA [None]
  - ULCER HAEMORRHAGE [None]
